FAERS Safety Report 9045718 (Version 1)
Quarter: 2013Q1

REPORT INFORMATION
  Report Type: Report from Study
  Country: US (occurrence: US)
  Receive Date: 20130131
  Receipt Date: 20130131
  Transmission Date: 20140127
  Serious: No
  Sender: FDA-Public Use
  Company Number: US-ABBOTT-12P-163-0993791-00

PATIENT
  Age: 76 Year
  Sex: Female

DRUGS (12)
  1. HUMIRA [Suspect]
     Indication: CROHN^S DISEASE
     Route: 058
     Dates: start: 20120822
  2. HUMIRA [Suspect]
     Dates: start: 20121023
  3. METHOTREXATE [Concomitant]
     Indication: PRODUCT USED FOR UNKNOWN INDICATION
  4. FOLIC ACID [Concomitant]
     Indication: PRODUCT USED FOR UNKNOWN INDICATION
  5. OMEPRAZOLE [Concomitant]
     Indication: PRODUCT USED FOR UNKNOWN INDICATION
  6. BABY ASPIRIN [Concomitant]
     Indication: PRODUCT USED FOR UNKNOWN INDICATION
  7. MULTIVITAMIN [Concomitant]
     Indication: PRODUCT USED FOR UNKNOWN INDICATION
  8. VITAMIN C [Concomitant]
     Indication: PRODUCT USED FOR UNKNOWN INDICATION
  9. VITAMIN E [Concomitant]
     Indication: PRODUCT USED FOR UNKNOWN INDICATION
  10. CALCIUM [Concomitant]
     Indication: PRODUCT USED FOR UNKNOWN INDICATION
  11. IMODIUM [Concomitant]
     Indication: PRODUCT USED FOR UNKNOWN INDICATION
  12. LEVOTHYROXINE [Concomitant]
     Indication: HYPOTHYROIDISM
     Route: 048

REACTIONS (11)
  - Pyrexia [Not Recovered/Not Resolved]
  - Hypothyroidism [Unknown]
  - Influenza like illness [Not Recovered/Not Resolved]
  - Nasopharyngitis [Recovering/Resolving]
  - Fatigue [Recovering/Resolving]
  - Malaise [Recovering/Resolving]
  - Pyrexia [Recovering/Resolving]
  - Cough [Recovering/Resolving]
  - Feeling abnormal [Recovering/Resolving]
  - Oropharyngeal pain [Unknown]
  - Drug dose omission [Recovered/Resolved]
